FAERS Safety Report 5857305-7 (Version None)
Quarter: 2008Q3

REPORT INFORMATION
  Report Type: 
  Country: None (occurrence: None)
  Receive Date: 20080822
  Receipt Date: 20080808
  Transmission Date: 20090109
  Serious: Yes (Life-Threatening, Hospitalization, Other)
  Sender: FDA-Public Use
  Company Number: 2008S1007452

PATIENT
  Age: 58 Year
  Sex: Female
  Weight: 66.6788 kg

DRUGS (2)
  1. MELOXICAM [Suspect]
     Indication: CARPAL TUNNEL SYNDROME
     Dosage: 15 MG;DAILY;ORAL; 7.5 MG;DAILY;ORAL
     Route: 048
     Dates: start: 20080310, end: 20080311
  2. MELOXICAM [Suspect]
     Indication: CARPAL TUNNEL SYNDROME
     Dosage: 15 MG;DAILY;ORAL; 7.5 MG;DAILY;ORAL
     Route: 048
     Dates: start: 20080312, end: 20080320

REACTIONS (5)
  - ABSCESS [None]
  - DIARRHOEA [None]
  - INTESTINAL PERFORATION [None]
  - PERITONITIS [None]
  - STOMACH DISCOMFORT [None]
